FAERS Safety Report 4663589-3 (Version None)
Quarter: 2005Q2

REPORT INFORMATION
  Report Type: 
  Country: None (occurrence: None)
  Receive Date: 20050517
  Receipt Date: 20050414
  Transmission Date: 20051028
  Serious: Yes (Other)
  Sender: FDA-Public Use
  Company Number: US-ROCHE-402094

PATIENT
  Age: 41 Year
  Sex: Female

DRUGS (3)
  1. PEGASYS [Suspect]
     Dosage: ROUTE REPORTED AS INJECTABLE.  DOSAGE REGIMEN REPORTED AS WEEKLY.
     Route: 050
     Dates: start: 20041105, end: 20050422
  2. COPEGUS [Suspect]
     Route: 048
     Dates: start: 20041105, end: 20050422
  3. HEPATITIS B VACCINE [Concomitant]

REACTIONS (27)
  - ALOPECIA [None]
  - BASEDOW'S DISEASE [None]
  - BLOOD POTASSIUM DECREASED [None]
  - BLOOD THYROID STIMULATING HORMONE DECREASED [None]
  - BLOOD THYROID STIMULATING HORMONE INCREASED [None]
  - BREAST DISCHARGE [None]
  - BREAST INJURY [None]
  - BREAST PAIN [None]
  - BRONCHIAL INFECTION [None]
  - CONTUSION [None]
  - COUGH [None]
  - DEHYDRATION [None]
  - DIARRHOEA [None]
  - DRY THROAT [None]
  - DYSPHONIA [None]
  - FATIGUE [None]
  - FEELING ABNORMAL [None]
  - INFLUENZA [None]
  - LARYNGITIS [None]
  - LOSS OF CONSCIOUSNESS [None]
  - NAUSEA [None]
  - OEDEMA PERIPHERAL [None]
  - RASH [None]
  - RECTAL HAEMORRHAGE [None]
  - THROAT IRRITATION [None]
  - TINEA INFECTION [None]
  - TONSILLITIS [None]
